FAERS Safety Report 23333964 (Version 1)
Quarter: 2023Q4

REPORT INFORMATION
  Report Type: Spontaneous
  Country: US (occurrence: US)
  Receive Date: 20231223
  Receipt Date: 20231223
  Transmission Date: 20240109
  Serious: No
  Sender: FDA-Public Use
  Company Number: US-SA-SAC20231215000917

PATIENT
  Age: 75 Year
  Sex: Male

DRUGS (2)
  1. DUPIXENT [Suspect]
     Active Substance: DUPILUMAB
     Dosage: 300 MG, QOW
     Route: 058
  2. NIACIN [Suspect]
     Active Substance: NIACIN
     Dosage: UNK

REACTIONS (8)
  - Paraesthesia [Unknown]
  - Scratch [Unknown]
  - Skin haemorrhage [Unknown]
  - Drug hypersensitivity [Unknown]
  - Rash [Unknown]
  - Injection site pain [Unknown]
  - Injection site swelling [Unknown]
  - Drug ineffective [Unknown]
